FAERS Safety Report 8811143 (Version 2)
Quarter: 2012Q4

REPORT INFORMATION
  Report Type: 
  Country: US (occurrence: US)
  Receive Date: 20120927
  Receipt Date: 20121126
  Transmission Date: 20130627
  Serious: Yes (Other)
  Sender: FDA-Public Use
  Company Number: US-BAYER-2012-100452

PATIENT
  Age: 46 Year
  Sex: Female

DRUGS (9)
  1. OCELLA [Suspect]
  2. YASMIN [Suspect]
     Indication: BIRTH CONTROL
  3. Z-PAK [Concomitant]
     Route: 048
  4. LEVOTHYROXINE [Concomitant]
     Dosage: 0.125 mg, UNK
     Route: 048
  5. SYNTHROID [Concomitant]
     Dosage: 100 ?g, UNK
     Route: 048
  6. ZYRTEC [Concomitant]
     Dosage: 10 mg, UNK
     Route: 048
  7. ROBAXIN [Concomitant]
     Dosage: 500 mg, UNK
     Route: 048
  8. DICLOFENAC [Concomitant]
     Dosage: 75 mg, UNK
     Route: 048
  9. AMOXICILLIN [Concomitant]
     Dosage: 500 mg, UNK
     Route: 048
     Dates: start: 20101206

REACTIONS (1)
  - Pulmonary embolism [Recovered/Resolved]
